FAERS Safety Report 8607700-8 (Version None)
Quarter: 2012Q3

REPORT INFORMATION
  Report Type: 
  Country: None (occurrence: None)
  Receive Date: 20120821
  Receipt Date: 20120814
  Transmission Date: 20120928
  Serious: Yes (Other)
  Sender: FDA-Public Use
  Company Number: IT-PFIZER INC-2012200630

PATIENT
  Age: 69 Year
  Sex: Male

DRUGS (5)
  1. ARMODAFINIL [Suspect]
     Indication: ORAL CANDIDIASIS
     Dosage: 100 MG, DAILY
     Route: 048
     Dates: start: 20120509, end: 20120521
  2. COUMADIN [Suspect]
     Indication: ATRIAL FIBRILLATION
     Dosage: 17.5 MG, WEEKLY
     Route: 048
     Dates: start: 20070221, end: 20120520
  3. CORDARONE [Concomitant]
     Dosage: 200 MG, UNK
     Route: 048
  4. OMEPRAZOLE [Concomitant]
     Dosage: 20 MG, UNK
     Route: 048
  5. BISOPROLOL FUMARATE [Concomitant]
     Dosage: 1.25 MG, 1 DOSAGE UNIT
     Route: 048

REACTIONS (1)
  - INTERNATIONAL NORMALISED RATIO INCREASED [None]
